FAERS Safety Report 10179148 (Version 1)
Quarter: 2014Q2

REPORT INFORMATION
  Report Type: Spontaneous
  Country: US (occurrence: None)
  Receive Date: 20140516
  Receipt Date: 20140516
  Transmission Date: 20141212
  Serious: Yes (Other)
  Sender: FDA-Public Use
  Company Number: None

PATIENT
  Age: 17 Year
  Sex: Male

DRUGS (2)
  1. RISPERIDONE [Suspect]
     Indication: PSYCHOTIC DISORDER
     Route: 048
     Dates: start: 20140410, end: 20140424
  2. HYDROXYZINE HCL [Concomitant]

REACTIONS (4)
  - Alanine aminotransferase increased [None]
  - Blood bilirubin increased [None]
  - Blood bilirubin unconjugated increased [None]
  - Condition aggravated [None]
